FAERS Safety Report 6899940-3 (Version None)
Quarter: 2010Q3

REPORT INFORMATION
  Report Type: 
  Country: None (occurrence: None)
  Receive Date: 20100803
  Receipt Date: 20100727
  Transmission Date: 20110219
  Serious: Yes (Hospitalization)
  Sender: FDA-Public Use
  Company Number: DE-BRISTOL-MYERS SQUIBB COMPANY-15180672

PATIENT
  Age: 73 Year
  Sex: Female

DRUGS (13)
  1. ABATACEPT [Suspect]
     Indication: RHEUMATOID ARTHRITIS
     Dosage: INTER:JAN09,RESTD:5MAR09,INTE:19OCT09(CUMULATIVE DOSE:NOV08-OCT09:8250 MG)RESTR:5MAY09 ALSO14JAN10
     Route: 042
     Dates: start: 20081120
  2. METHOTREXATE [Suspect]
     Dosage: INTERR AND RESRTED ON FEB2009
     Route: 048
     Dates: start: 20040101
  3. METHYLPREDNISOLONE [Concomitant]
     Dosage: BEFORE 2003
  4. CALCIUM CARBONATE + CHOLECALCIFEROL [Concomitant]
     Dosage: BEFORE 2003 CALCILAC
  5. BISOPROLOL [Concomitant]
     Dosage: BISOPROLOL 5
     Dates: start: 20030501
  6. INSPRA [Concomitant]
     Dosage: INSPRA 25
     Dates: start: 20060601
  7. PANTOZOL [Concomitant]
     Dosage: PANTOZOL 20
     Dates: start: 20060601
  8. ASPIRIN [Concomitant]
     Dates: start: 20060601
  9. FLUVASTATIN [Concomitant]
     Dosage: LOCOL 80
     Dates: start: 20060601
  10. LISINOPRIL [Concomitant]
     Dosage: LISINOPRIL 5
     Dates: start: 20061101
  11. PENTAERYTHRITOL TETRANITRATE [Concomitant]
     Dosage: PENTALONG 80
     Dates: start: 20070101
  12. PROTELOS [Concomitant]
     Dates: start: 20080101
  13. REMERGIL [Concomitant]
     Dosage: REMERGIL 30
     Dates: start: 20081001

REACTIONS (5)
  - ASTHENIA [None]
  - DIZZINESS [None]
  - MAJOR DEPRESSION [None]
  - NASOPHARYNGITIS [None]
  - PANIC ATTACK [None]
